FAERS Safety Report 13295776 (Version 2)
Quarter: 2017Q1

REPORT INFORMATION
  Report Type: Spontaneous
  Country: US (occurrence: US)
  Receive Date: 20170303
  Receipt Date: 20170317
  Transmission Date: 20170428
  Serious: Yes (Death, Hospitalization)
  Sender: FDA-Public Use
  Company Number: US-ACTELION-A-US2017-150524

PATIENT
  Age: 62 Year
  Sex: Male

DRUGS (7)
  1. MORPHINE [Concomitant]
     Active Substance: MORPHINE
     Dosage: 2 MG, Q1HOUR, PRN
     Route: 042
     Dates: start: 20170224, end: 20170224
  2. UPTRAVI [Suspect]
     Active Substance: SELEXIPAG
     Indication: PULMONARY HYPERTENSION
     Dosage: 400 MCG, BID
     Route: 048
     Dates: start: 20170222, end: 20170224
  3. SILDENAFIL CITRATE. [Concomitant]
     Active Substance: SILDENAFIL CITRATE
  4. UPTRAVI [Suspect]
     Active Substance: SELEXIPAG
     Dosage: 200 MCG, BID
     Route: 048
     Dates: start: 20170215
  5. ACYCLOVIR. [Concomitant]
     Active Substance: ACYCLOVIR
     Dosage: 275 MG, PRN
     Route: 042
     Dates: start: 20170221, end: 20170224
  6. LORAZEPAM. [Concomitant]
     Active Substance: LORAZEPAM
     Dosage: 2 MG, Q4HRS, PRN
     Route: 042
     Dates: start: 20170224, end: 20170224
  7. AMIODARONE [Concomitant]
     Active Substance: AMIODARONE
     Dosage: 200 ML, UNK
     Route: 042
     Dates: start: 20170214, end: 20170224

REACTIONS (4)
  - Renal failure [Unknown]
  - Condition aggravated [Fatal]
  - Hypotension [Unknown]
  - Right ventricular failure [Fatal]
